FAERS Safety Report 24622550 (Version 7)
Quarter: 2025Q2

REPORT INFORMATION
  Report Type: Spontaneous
  Country: US (occurrence: US)
  Receive Date: 20241115
  Receipt Date: 20250609
  Transmission Date: 20250716
  Serious: No
  Sender: ALEXION PHARMACEUTICALS
  Company Number: US-AstraZeneca-CH-00747663AP

PATIENT
  Age: 67 Year

DRUGS (1)
  1. AIRSUPRA [Suspect]
     Active Substance: ALBUTEROL SULFATE\BUDESONIDE
     Route: 065

REACTIONS (4)
  - Product use issue [Unknown]
  - Incorrect dose administered by product [Unknown]
  - Intentional product misuse [Unknown]
  - Device delivery system issue [Unknown]
